FAERS Safety Report 24173091 (Version 1)
Quarter: 2024Q3

REPORT INFORMATION
  Report Type: Spontaneous
  Country: JP (occurrence: JP)
  Receive Date: 20240805
  Receipt Date: 20240805
  Transmission Date: 20241017
  Serious: Yes (Other)
  Sender: PFIZER
  Company Number: JP-PFIZER INC-202400226958

PATIENT
  Sex: Female
  Weight: 3.666 kg

DRUGS (1)
  1. PENICILLIN G BENZATHINE [Suspect]
     Active Substance: PENICILLIN G BENZATHINE
     Indication: Latent syphilis
     Dosage: 2400000 IU, WEEKLY
     Route: 064
     Dates: start: 202308, end: 20230914

REACTIONS (2)
  - Congenital syphilis [Unknown]
  - Maternal exposure during pregnancy [Unknown]

NARRATIVE: CASE EVENT DATE: 20230801
